FAERS Safety Report 5398641-0 (Version None)
Quarter: 2007Q3

REPORT INFORMATION
  Report Type: 
  Country: None (occurrence: None)
  Receive Date: 20070726
  Receipt Date: 20060614
  Transmission Date: 20080115
  Serious: No
  Sender: FDA-Public Use
  Company Number: US-AMGEN-KDL183126

PATIENT
  Sex: Female
  Weight: 46.8 kg

DRUGS (6)
  1. PROCRIT [Suspect]
     Indication: PRE-EXISTING DISEASE
     Route: 058
     Dates: start: 20051001
  2. RIBAVIRIN [Concomitant]
     Dates: start: 20050520
  3. INTERFERON [Concomitant]
     Dates: start: 20050530
  4. AMBIEN [Concomitant]
  5. TRICOR [Concomitant]
  6. FLUOXETINE [Concomitant]

REACTIONS (3)
  - NEUTROPHIL COUNT DECREASED [None]
  - PLATELET COUNT DECREASED [None]
  - WHITE BLOOD CELL COUNT DECREASED [None]
